FAERS Safety Report 8477340-2 (Version None)
Quarter: 2012Q2

REPORT INFORMATION
  Report Type: 
  Country: None (occurrence: None)
  Receive Date: 20120622
  Receipt Date: 20120613
  Transmission Date: 20120825
  Serious: Yes (Death)
  Sender: FDA-Public Use
  Company Number: ADR-2012-00807

PATIENT
  Sex: Male

DRUGS (2)
  1. LIORESAL [Suspect]
     Indication: CEREBRAL PALSY
     Dosage: 510 MCG/DAY
  2. LIORESAL [Suspect]
     Indication: MUSCLE SPASTICITY
     Dosage: 510 MCG/DAY

REACTIONS (5)
  - NEPHROLITHIASIS [None]
  - ILEUS [None]
  - SEPSIS [None]
  - URINARY TRACT INFECTION [None]
  - UNEVALUABLE EVENT [None]
